FAERS Safety Report 12208024 (Version 1)
Quarter: 2016Q1

REPORT INFORMATION
  Report Type: Spontaneous
  Country: US (occurrence: US)
  Receive Date: 20160324
  Receipt Date: 20160324
  Transmission Date: 20160526
  Serious: Yes (Other)
  Sender: FDA-Public Use
  Company Number: US-BEH-2016058058

PATIENT
  Age: 10 Year
  Sex: Male
  Weight: 32 kg

DRUGS (10)
  1. LIDOCAINE/PRILOCAINE [Concomitant]
  2. LORTADINE [Concomitant]
  3. HIZENTRA [Suspect]
     Active Substance: HUMAN IMMUNOGLOBULIN G
     Indication: HYPOGLOBULINAEMIA
     Route: 058
  4. DIPHENHYDRAMINE. [Concomitant]
     Active Substance: DIPHENHYDRAMINE
  5. VENTOLIN [Concomitant]
     Active Substance: ALBUTEROL SULFATE
  6. BENADRYL [Concomitant]
     Active Substance: DIPHENHYDRAMINE HYDROCHLORIDE
  7. HYDROCORTISONE. [Concomitant]
     Active Substance: HYDROCORTISONE
  8. TYLENOL [Concomitant]
     Active Substance: ACETAMINOPHEN
  9. EPIPEN [Concomitant]
     Active Substance: EPINEPHRINE
  10. LMX [Concomitant]
     Active Substance: LIDOCAINE

REACTIONS (3)
  - Viral infection [Unknown]
  - Bacterial infection [Unknown]
  - Gastric infection [Unknown]

NARRATIVE: CASE EVENT DATE: 201511
